FAERS Safety Report 5581525-2 (Version None)
Quarter: 2008Q1

REPORT INFORMATION
  Report Type: 
  Country: None (occurrence: None)
  Receive Date: 20080104
  Receipt Date: 20070723
  Transmission Date: 20080703
  Serious: Yes (Hospitalization, Other)
  Sender: FDA-Public Use
  Company Number: US-ASTRAZENECA-2006UW00434

PATIENT
  Age: 567 Month
  Sex: Male
  Weight: 104.5 kg

DRUGS (3)
  1. SEROQUEL [Suspect]
     Indication: SCHIZOPHRENIA
     Route: 048
     Dates: start: 20010101, end: 20040101
  2. ABILIFY [Concomitant]
     Dates: start: 20040101
  3. RISPERDAL [Concomitant]
     Dates: start: 20030818, end: 20030101

REACTIONS (4)
  - BIOPSY LUNG [None]
  - DIABETES MELLITUS [None]
  - DIABETIC COMPLICATION [None]
  - LUNG NEOPLASM MALIGNANT [None]
